FAERS Safety Report 23457490 (Version 3)
Quarter: 2024Q3

REPORT INFORMATION
  Report Type: Spontaneous
  Country: CA (occurrence: CA)
  Receive Date: 20240130
  Receipt Date: 20240816
  Transmission Date: 20241017
  Serious: Yes (Hospitalization, Disabling, Other)
  Sender: PFIZER
  Company Number: CA-PFIZER INC-202400026373

PATIENT
  Age: 50 Year
  Sex: Female
  Weight: 61.2 kg

DRUGS (9)
  1. RUXIENCE [Suspect]
     Active Substance: RITUXIMAB-PVVR
     Indication: Neuromyelitis optica spectrum disorder
     Dosage: 1 G EVERY 2 WEEKS EVERY 6 MONTHS
     Route: 042
     Dates: start: 20191201
  2. RUXIENCE [Suspect]
     Active Substance: RITUXIMAB-PVVR
     Dosage: 1000 MG, EVERY 2 WEEKS FOR 6 MONTHS (DAY 1)
     Route: 042
     Dates: start: 20240124
  3. RUXIENCE [Suspect]
     Active Substance: RITUXIMAB-PVVR
     Dosage: 1000 MG, EVERY 2 WEEKS FOR 6 MONTHS
     Route: 042
     Dates: start: 20240124, end: 20240206
  4. RUXIENCE [Suspect]
     Active Substance: RITUXIMAB-PVVR
     Dosage: 1000 MG, EVERY 2 WEEKS
     Route: 042
     Dates: start: 20240806
  5. CODEINE [Concomitant]
     Active Substance: CODEINE
     Dosage: UNK
  6. GABAPENTIN [Concomitant]
     Active Substance: GABAPENTIN
     Dosage: UNK
  7. GRAVOL [Concomitant]
     Active Substance: DIMENHYDRINATE
     Dosage: UNK
  8. LETROZOLE [Concomitant]
     Active Substance: LETROZOLE
     Dosage: UNK
  9. NABILONE [Concomitant]
     Active Substance: NABILONE
     Dosage: UNK

REACTIONS (1)
  - Breast cancer stage I [Recovered/Resolved]

NARRATIVE: CASE EVENT DATE: 20210726
